FAERS Safety Report 16725031 (Version 1)
Quarter: 2019Q3

REPORT INFORMATION
  Report Type: Spontaneous
  Country: US (occurrence: US)
  Receive Date: 20190704
  Receipt Date: 20190704
  Transmission Date: 20191005
  Serious: No
  Sender: FDA-Public Use
  Company Number: None

PATIENT
  Age: 70 Year
  Sex: Male

DRUGS (2)
  1. GUAIFENESIN. [Suspect]
     Active Substance: GUAIFENESIN
     Indication: SUSPECTED PRODUCT CONTAMINATION
     Dates: start: 20181128
  2. GUAIFENESIN. [Suspect]
     Active Substance: GUAIFENESIN
     Indication: RECALLED PRODUCT
     Dates: start: 20181128

REACTIONS (5)
  - Suspected product contamination [None]
  - Recalled product administered [None]
  - Diarrhoea [None]
  - Nausea [None]
  - Vomiting [None]

NARRATIVE: CASE EVENT DATE: 20181201
